FAERS Safety Report 7384010-0 (Version None)
Quarter: 2011Q1

REPORT INFORMATION
  Report Type: 
  Country: None (occurrence: None)
  Receive Date: 20110330
  Receipt Date: 20110322
  Transmission Date: 20110831
  Serious: Yes (Other)
  Sender: FDA-Public Use
  Company Number: IT-PURDUE-GBR-2011-0007947

PATIENT
  Age: 67 Year
  Sex: Male

DRUGS (2)
  1. MORPHINE SULFATE [Suspect]
     Indication: PAIN
     Route: 037
  2. MARCAINE                           /00330101/ [Concomitant]

REACTIONS (1)
  - HYPOGONADISM MALE [None]
